FAERS Safety Report 22121406 (Version 1)
Quarter: 2023Q1

REPORT INFORMATION
  Report Type: Spontaneous
  Country: AU (occurrence: AU)
  Receive Date: 20230321
  Receipt Date: 20230321
  Transmission Date: 20230418
  Serious: Yes (Other)
  Sender: FDA-Public Use
  Company Number: AU-MAYNE PHARMA-2023TMD00116

PATIENT
  Age: 58 Year
  Sex: Female

DRUGS (1)
  1. BIJUVA [Suspect]
     Active Substance: ESTRADIOL\PROGESTERONE
     Indication: Product used for unknown indication
     Dosage: UNK

REACTIONS (2)
  - Vaginal haemorrhage [Not Recovered/Not Resolved]
  - Impaired work ability [Unknown]
